FAERS Safety Report 7443326-X (Version None)
Quarter: 2011Q2

REPORT INFORMATION
  Report Type: 
  Country: None (occurrence: None)
  Receive Date: 20110428
  Receipt Date: 20110415
  Transmission Date: 20111010
  Serious: Yes (Other)
  Sender: FDA-Public Use
  Company Number: DE-JNJFOC-20110305197

PATIENT
  Age: 44 Year
  Sex: Male
  Weight: 92.5 kg

DRUGS (5)
  1. REMICADE [Suspect]
     Dosage: PATIENT RECEIVED 4 INFUSIONS
     Route: 042
  2. HYDROCORTISONE [Concomitant]
     Indication: COLITIS ULCERATIVE
  3. MESALAMINE [Concomitant]
     Indication: COLITIS ULCERATIVE
  4. REMICADE [Suspect]
     Indication: COLITIS ULCERATIVE
     Dosage: TOTAL 4 INFUSIONS
     Route: 042
  5. AZATHIOPRINE [Concomitant]
     Indication: COLITIS ULCERATIVE

REACTIONS (1)
  - ANOSMIA [None]
